FAERS Safety Report 4981214-9 (Version None)
Quarter: 2006Q2

REPORT INFORMATION
  Report Type: 
  Country: None (occurrence: None)
  Receive Date: 20060424
  Receipt Date: 20060414
  Transmission Date: 20061013
  Serious: Yes (Life-Threatening, Hospitalization)
  Sender: FDA-Public Use
  Company Number: US-JNJFOC-20051201458

PATIENT
  Sex: Male

DRUGS (22)
  1. MOTRIN [Suspect]
     Indication: DRUG USE FOR UNKNOWN INDICATION
  2. TEGRETOL [Suspect]
     Indication: DRUG USE FOR UNKNOWN INDICATION
     Dosage: UNKNOWN DOSAGE
  3. NSAIDS [Suspect]
     Indication: DRUG USE FOR UNKNOWN INDICATION
  4. RADIATION THERAPY [Concomitant]
     Indication: ASTROCYTOMA
  5. TEMODAR [Concomitant]
     Indication: ASTROCYTOMA
     Dosage: 75 MG/M^2, ORAL
     Route: 048
  6. NORVASC [Concomitant]
  7. CELEXA [Concomitant]
     Indication: DEPRESSION
  8. ZOFRAN [Concomitant]
     Indication: NAUSEA
  9. VANCOMYCIN [Concomitant]
     Indication: PNEUMONIA
  10. ACYCLOVIR [Concomitant]
     Indication: PNEUMONIA
  11. ZOSYN [Concomitant]
  12. ZOSYN [Concomitant]
     Indication: PNEUMONIA
  13. AMPICILLIN SODIUM [Concomitant]
     Indication: PNEUMONIA
  14. KEPPRA [Concomitant]
  15. CARBATROL [Concomitant]
  16. FISH OIL [Concomitant]
  17. XANAX [Concomitant]
     Indication: AGITATION
  18. XANAX [Concomitant]
     Indication: ANXIETY
  19. VICODIN [Concomitant]
  20. VICODIN [Concomitant]
  21. VYTORIN [Concomitant]
  22. IMMUNE GLOBULIN INTRAVENOUS (HUMAN) [Concomitant]
     Route: 042

REACTIONS (6)
  - COMA [None]
  - ENCEPHALITIS [None]
  - MENINGITIS FUNGAL [None]
  - MENINGITIS VIRAL [None]
  - NEPHRITIS [None]
  - RENAL FAILURE ACUTE [None]
